FAERS Safety Report 9283885 (Version 3)
Quarter: 2013Q3

REPORT INFORMATION
  Report Type: Spontaneous
  Country: US (occurrence: US)
  Receive Date: 20130510
  Receipt Date: 20130701
  Transmission Date: 20140515
  Serious: Yes (Other)
  Sender: FDA-Public Use
  Company Number: US-JNJFOC-20130503523

PATIENT
  Age: 35 Year
  Sex: Female

DRUGS (10)
  1. INFLIXIMAB [Suspect]
     Indication: COLITIS ULCERATIVE
     Dosage: 3RD DOSE
     Route: 042
  2. INFLIXIMAB [Suspect]
     Indication: COLITIS ULCERATIVE
     Dosage: 0,2 AND 6 WEEKS
     Route: 042
  3. INFLIXIMAB [Suspect]
     Indication: COLITIS ULCERATIVE
     Dosage: 2ND DOSE
     Route: 042
  4. OMEPRAZOLE [Concomitant]
     Route: 065
  5. PREDNISONE [Concomitant]
     Route: 065
  6. FISH OIL [Concomitant]
     Route: 065
  7. ALOE VERA [Concomitant]
     Route: 065
  8. ASCORBIC ACID [Concomitant]
     Route: 065
  9. CALCIUM [Concomitant]
     Route: 065
  10. IRON [Concomitant]
     Route: 065

REACTIONS (2)
  - Drug-induced liver injury [Recovering/Resolving]
  - Cholestasis [Recovering/Resolving]
